FAERS Safety Report 12598214 (Version 18)
Quarter: 2017Q4

REPORT INFORMATION
  Report Type: Report from Study
  Country: CA (occurrence: CA)
  Receive Date: 20160727
  Receipt Date: 20171013
  Transmission Date: 20180320
  Serious: Yes (Hospitalization, Other)
  Sender: FDA-Public Use
  Company Number: CA-TAKEDA-2016TUS011437

PATIENT
  Age: 30 Year
  Sex: Female

DRUGS (7)
  1. VEDOLIZUMAB [Suspect]
     Active Substance: VEDOLIZUMAB
     Dosage: 300 MG, UNK
     Route: 042
     Dates: start: 20170418
  2. TYLENOL [Concomitant]
     Active Substance: ACETAMINOPHEN
     Dosage: UNK
  3. ZOLOFT [Concomitant]
     Active Substance: SERTRALINE HYDROCHLORIDE
     Dosage: 50 MG, UNK
  4. VEDOLIZUMAB [Suspect]
     Active Substance: VEDOLIZUMAB
     Dosage: 300 MG, Q4WEEKS
     Route: 042
     Dates: start: 20170808
  5. FERODAN [Concomitant]
     Dosage: 150 MG, TID
  6. KEPPRA [Concomitant]
     Active Substance: LEVETIRACETAM
     Indication: EPILEPSY
     Dosage: 500 MG, BID
  7. VEDOLIZUMAB [Suspect]
     Active Substance: VEDOLIZUMAB
     Indication: COLITIS ULCERATIVE
     Dosage: 300 MG, UNK
     Route: 042
     Dates: start: 20160615

REACTIONS (61)
  - Anxiety [Unknown]
  - Oral disorder [Unknown]
  - Eye paraesthesia [Unknown]
  - Back pain [Unknown]
  - Vomiting [Not Recovered/Not Resolved]
  - Condition aggravated [Unknown]
  - Vision blurred [Unknown]
  - Abdominal pain [Not Recovered/Not Resolved]
  - Dry skin [Unknown]
  - Wound [Unknown]
  - Arthralgia [Unknown]
  - Rash [Unknown]
  - Colitis ulcerative [Unknown]
  - Vulval haemorrhage [Not Recovered/Not Resolved]
  - Eyelid oedema [Unknown]
  - Dyspnoea [Unknown]
  - Breast mass [Unknown]
  - Myalgia [Unknown]
  - Nasal congestion [Unknown]
  - Pain in extremity [Unknown]
  - Decreased appetite [Unknown]
  - Clostridium difficile infection [Unknown]
  - Sleep disorder [Unknown]
  - Poor venous access [Unknown]
  - Burning sensation [Unknown]
  - Flatulence [Not Recovered/Not Resolved]
  - Acne [Not Recovered/Not Resolved]
  - Fatigue [Unknown]
  - Off label use [Unknown]
  - Haematochezia [Not Recovered/Not Resolved]
  - Diarrhoea [Not Recovered/Not Resolved]
  - Eye irritation [Unknown]
  - Tremor [Not Recovered/Not Resolved]
  - Secretion discharge [Unknown]
  - Chest discomfort [Unknown]
  - Arthralgia [Unknown]
  - Skin irritation [Unknown]
  - Proctalgia [Not Recovered/Not Resolved]
  - Migraine [Not Recovered/Not Resolved]
  - Anal abscess [Unknown]
  - Weight increased [Unknown]
  - Axillary mass [Recovered/Resolved]
  - Rash [Unknown]
  - Heart rate increased [Unknown]
  - Contusion [Unknown]
  - Ocular hyperaemia [Unknown]
  - Inflammatory marker increased [Unknown]
  - Pain in extremity [Not Recovered/Not Resolved]
  - Pharyngitis [Unknown]
  - Headache [Unknown]
  - Pain [Unknown]
  - Blood pressure decreased [Unknown]
  - Stomatitis [Unknown]
  - Eye pain [Not Recovered/Not Resolved]
  - Onychoclasis [Unknown]
  - Skin discolouration [Not Recovered/Not Resolved]
  - Eye disorder [Unknown]
  - Dry throat [Unknown]
  - Fall [Unknown]
  - Musculoskeletal stiffness [Unknown]
  - Nausea [Unknown]

NARRATIVE: CASE EVENT DATE: 2016
